FAERS Safety Report 15195639 (Version 2)
Quarter: 2018Q3

REPORT INFORMATION
  Report Type: Report from Study
  Country: None (occurrence: IT)
  Receive Date: 20180725
  Receipt Date: 20180727
  Transmission Date: 20181010
  Serious: Yes (Death)
  Sender: FDA-Public Use
  Company Number: IT-ABBVIE-18S-083-2430724-00

PATIENT
  Sex: Female

DRUGS (1)
  1. DUODOPA [Suspect]
     Active Substance: CARBIDOPA\LEVODOPA
     Indication: PARKINSON^S DISEASE
     Dosage: MD: 4+3 CR: 3,9 ED: 2
     Route: 050
     Dates: start: 20180116

REACTIONS (2)
  - General physical health deterioration [Fatal]
  - Dyspnoea [Fatal]

NARRATIVE: CASE EVENT DATE: 2018
